FAERS Safety Report 7793104-7 (Version None)
Quarter: 2011Q3

REPORT INFORMATION
  Report Type: 
  Country: None (occurrence: None)
  Receive Date: 20110929
  Receipt Date: 20110916
  Transmission Date: 20111222
  Serious: Yes (Life-Threatening, Hospitalization, Other)
  Sender: FDA-Public Use
  Company Number: 2011S1001073

PATIENT
  Age: 40 Year
  Sex: Male
  Weight: 56 kg

DRUGS (6)
  1. ASPIRIN [Concomitant]
  2. CONIEL [Concomitant]
  3. LANSOPRAZOLE [Concomitant]
  4. PLETAL [Concomitant]
  5. LIVALO [Suspect]
     Indication: DYSLIPIDAEMIA
     Dosage: 2 MG, 1X, PO
     Route: 048
     Dates: start: 20100609, end: 20100702
  6. TICLOPIDINE HCL [Suspect]
     Indication: MYOCARDIAL INFARCTION
     Dosage: 100 MG, BID, PO
     Route: 048
     Dates: start: 20100609, end: 20100702

REACTIONS (5)
  - BLOOD BILIRUBIN INCREASED [None]
  - DECREASED APPETITE [None]
  - DYSPEPSIA [None]
  - ERYTHEMA [None]
  - LIVER DISORDER [None]
